FAERS Safety Report 7358441-9 (Version None)
Quarter: 2011Q1

REPORT INFORMATION
  Report Type: 
  Country: None (occurrence: None)
  Receive Date: 20110307
  Receipt Date: 20110222
  Transmission Date: 20110831
  Serious: Yes (Other)
  Sender: FDA-Public Use
  Company Number: 023926

PATIENT
  Sex: Male

DRUGS (2)
  1. CIMZIA [Suspect]
     Indication: CROHN'S DISEASE
     Dosage: SUBCUTANEOUS
     Route: 058
     Dates: start: 20101202, end: 20101230
  2. CORTISONE [Concomitant]

REACTIONS (5)
  - PSORIASIS [None]
  - QUALITY OF LIFE DECREASED [None]
  - ANXIETY [None]
  - FEELING ABNORMAL [None]
  - SENSITIVITY OF TEETH [None]
